FAERS Safety Report 6980910-1 (Version None)
Quarter: 2010Q3

REPORT INFORMATION
  Report Type: 
  Country: None (occurrence: None)
  Receive Date: 20100914
  Receipt Date: 20100909
  Transmission Date: 20110219
  Serious: Yes (Death)
  Sender: FDA-Public Use
  Company Number: A0871721A

PATIENT
  Age: 80 Year
  Sex: Male

DRUGS (1)
  1. MEPRON [Suspect]
     Indication: PRODUCT USED FOR UNKNOWN INDICATION
     Route: 065
     Dates: start: 20100419, end: 20100620

REACTIONS (1)
  - CEREBROVASCULAR ACCIDENT [None]
